FAERS Safety Report 12581494 (Version 1)
Quarter: 2016Q3

REPORT INFORMATION
  Report Type: Report from Study
  Country: US (occurrence: US)
  Receive Date: 20160721
  Receipt Date: 20160721
  Transmission Date: 20161109
  Serious: No
  Sender: FDA-Public Use
  Company Number: US-AMGEN-USASL2016092055

PATIENT
  Age: 60 Year
  Sex: Female

DRUGS (1)
  1. ENBREL [Suspect]
     Active Substance: ETANERCEPT
     Indication: PRODUCT USED FOR UNKNOWN INDICATION
     Dosage: 50 MG, QWK
     Route: 065
     Dates: start: 201510

REACTIONS (7)
  - Injection site urticaria [Recovered/Resolved]
  - Arthralgia [Unknown]
  - Injection site reaction [Recovered/Resolved]
  - Insomnia [Unknown]
  - Psoriasis [Unknown]
  - Bronchitis [Recovered/Resolved]
  - Injection site pain [Unknown]
